FAERS Safety Report 5362087-1 (Version None)
Quarter: 2007Q2

REPORT INFORMATION
  Report Type: 
  Country: None (occurrence: None)
  Receive Date: 20070615
  Receipt Date: 20070615
  Transmission Date: 20071010
  Serious: No
  Sender: FDA-Public Use
  Company Number: None

PATIENT
  Age: 52 Year
  Sex: Female
  Weight: 57 kg

DRUGS (2)
  1. ZOSYN [Suspect]
     Indication: CELLULITIS
     Dosage: 4.5GM INJ 100ML D5W IVPB Q 8 H IV
     Route: 042
     Dates: start: 20070608, end: 20070610
  2. ZOSYN [Suspect]
     Indication: SKIN INFECTION
     Dosage: 4.5GM INJ 100ML D5W IVPB Q 8 H IV
     Route: 042
     Dates: start: 20070608, end: 20070610

REACTIONS (1)
  - RASH MACULO-PAPULAR [None]
